FAERS Safety Report 10301504 (Version 1)
Quarter: 2014Q3

REPORT INFORMATION
  Report Type: Spontaneous
  Country: US (occurrence: None)
  Receive Date: 20140709
  Receipt Date: 20140709
  Transmission Date: 20150326
  Serious: Yes (Disabling)
  Sender: FDA-Public Use
  Company Number: None

PATIENT
  Age: 36 Year
  Sex: Female
  Weight: 60.33 kg

DRUGS (1)
  1. LATUDA [Suspect]
     Active Substance: LURASIDONE HYDROCHLORIDE
     Indication: BIPOLAR DISORDER
     Route: 048
     Dates: start: 20140601, end: 20140706

REACTIONS (15)
  - Weight increased [None]
  - Pain in jaw [None]
  - Dysphagia [None]
  - Anxiety [None]
  - Palpitations [None]
  - Nausea [None]
  - Dyskinesia [None]
  - Heart rate increased [None]
  - Syncope [None]
  - Heart rate irregular [None]
  - Dizziness [None]
  - Neck pain [None]
  - Musculoskeletal stiffness [None]
  - Drug ineffective [None]
  - Back pain [None]

NARRATIVE: CASE EVENT DATE: 20140701
